FAERS Safety Report 9741443 (Version 3)
Quarter: 2014Q2

REPORT INFORMATION
  Report Type: Report from Study
  Country: US (occurrence: US)
  Receive Date: 20131209
  Receipt Date: 20140607
  Transmission Date: 20141212
  Serious: Yes (Hospitalization)
  Sender: FDA-Public Use
  Company Number: PHEH2013US025375

PATIENT
  Age: 36 Year
  Sex: Female

DRUGS (4)
  1. TOBI [Suspect]
     Indication: CYSTIC FIBROSIS
     Dosage: 300 MG, BID
     Route: 055
  2. TOBI [Suspect]
     Indication: PNEUMONIA PSEUDOMONAL
     Dosage: 300 MG, BID
     Route: 055
  3. TOBI PODHALER [Suspect]
     Indication: CYSTIC FIBROSIS
     Dosage: 112 MG, BID (3 TREATMENTS)
     Route: 055
     Dates: start: 20131116, end: 20131117
  4. TOBI PODHALER [Suspect]
     Indication: PNEUMONIA PSEUDOMONAL
     Dosage: 4 DF, (4 CAPSULE BID)
     Route: 055
     Dates: start: 20131118, end: 20131118

REACTIONS (7)
  - Pharyngeal oedema [Not Recovered/Not Resolved]
  - Asthma [Not Recovered/Not Resolved]
  - Wheezing [Not Recovered/Not Resolved]
  - Chest discomfort [Not Recovered/Not Resolved]
  - Dyspnoea [Not Recovered/Not Resolved]
  - Cough [Not Recovered/Not Resolved]
  - Bronchospasm [Recovering/Resolving]
